FAERS Safety Report 5526478-8 (Version None)
Quarter: 2007Q4

REPORT INFORMATION
  Report Type: 
  Country: None (occurrence: None)
  Receive Date: 20071127
  Receipt Date: 20071113
  Transmission Date: 20080405
  Serious: Yes (Other)
  Sender: FDA-Public Use
  Company Number: ES-AMGEN-UK252639

PATIENT
  Age: 20 Year
  Sex: Male

DRUGS (1)
  1. NEUPOGEN [Suspect]
     Indication: CROHN'S DISEASE
     Dates: start: 20071008

REACTIONS (1)
  - GAMMA-GLUTAMYLTRANSFERASE INCREASED [None]
